FAERS Safety Report 24415595 (Version 1)
Quarter: 2024Q4

REPORT INFORMATION
  Report Type: Report from Study
  Country: CA (occurrence: CA)
  Receive Date: 20241009
  Receipt Date: 20241009
  Transmission Date: 20250115
  Serious: Yes (Other)
  Sender: PFIZER
  Company Number: CA-PFIZER INC-202400271548

PATIENT
  Age: 34 Year
  Sex: Female

DRUGS (2)
  1. EPINEPHRINE [Suspect]
     Active Substance: EPINEPHRINE
     Dosage: UNK
     Route: 065
  2. OMALIZUMAB [Suspect]
     Active Substance: OMALIZUMAB
     Indication: Chronic spontaneous urticaria
     Dosage: 300 MG, 1 EVERY 4 WEEKS
     Route: 058

REACTIONS (6)
  - Food allergy [Recovering/Resolving]
  - Memory impairment [Recovering/Resolving]
  - Myocardial infarction [Recovering/Resolving]
  - Nervousness [Recovering/Resolving]
  - Perfume sensitivity [Recovering/Resolving]
  - Urticaria [Recovering/Resolving]
